FAERS Safety Report 9902374 (Version 1)
Quarter: 2014Q1

REPORT INFORMATION
  Report Type: Spontaneous
  Country: US (occurrence: US)
  Receive Date: 20140217
  Receipt Date: 20140217
  Transmission Date: 20141002
  Serious: No
  Sender: FDA-Public Use
  Company Number: US-GILEAD-2011-0045545

PATIENT
  Age: 19 Year
  Sex: Female

DRUGS (2)
  1. LETAIRIS [Suspect]
     Indication: PRODUCT USED FOR UNKNOWN INDICATION
     Dosage: 5 MG, UNK
     Route: 048
     Dates: start: 20070930
  2. TYVASO [Concomitant]
     Dosage: UNK

REACTIONS (5)
  - Chest discomfort [Unknown]
  - Dizziness [Unknown]
  - Blood pressure decreased [Unknown]
  - Cough [Unknown]
  - Palpitations [Unknown]
